FAERS Safety Report 20978996 (Version 1)
Quarter: 2022Q2

REPORT INFORMATION
  Report Type: Report from Study
  Country: DE (occurrence: None)
  Receive Date: 20220619
  Receipt Date: 20220619
  Transmission Date: 20220721
  Serious: Yes (Hospitalization)
  Sender: FDA-Public Use
  Company Number: DE-ROCHE-3115473

PATIENT
  Age: 49 Year
  Sex: Female
  Weight: 64.2 kg

DRUGS (18)
  1. ATEZOLIZUMAB [Suspect]
     Active Substance: ATEZOLIZUMAB
     Indication: Triple negative breast cancer
     Dosage: DATE OF LAST DOSE PRIOR TO SAE: 28/APR/2022
     Route: 041
     Dates: start: 20211119
  2. PACLITAXEL [Suspect]
     Active Substance: PACLITAXEL
     Indication: Triple negative breast cancer
     Dosage: DATE OF LAST DOSE PRIOR TO SAE: 11/FEB/2022
     Route: 041
     Dates: start: 20211119
  3. CARBOPLATIN [Suspect]
     Active Substance: CARBOPLATIN
     Indication: Triple negative breast cancer
     Dosage: DATE OF LAST DOSE PRIOR TO SAE: 11/FEB/2022
     Route: 041
     Dates: start: 20211119
  4. EPIRUBICIN [Suspect]
     Active Substance: EPIRUBICIN
     Indication: Triple negative breast cancer
     Dosage: DATE OF LAST DOSE PRIOR TO SAE: 28/APR/2022
     Route: 041
     Dates: start: 20220224
  5. CYCLOPHOSPHAMIDE [Suspect]
     Active Substance: CYCLOPHOSPHAMIDE
     Indication: Triple negative breast cancer
     Dosage: DATE OF LAST DOSE PRIOR TO SAE: 28/APR/2022
     Route: 041
     Dates: start: 20220224
  6. CLEMASTINE [Concomitant]
     Active Substance: CLEMASTINE
     Dates: start: 20211119
  7. DEXAMETHASONE [Concomitant]
     Active Substance: DEXAMETHASONE
     Dates: start: 20211119
  8. ONDANSETRON [Concomitant]
     Active Substance: ONDANSETRON
     Dates: start: 20211119
  9. FILGRASTIM [Concomitant]
     Active Substance: FILGRASTIM
     Dates: start: 20211227, end: 20211227
  10. FILGRASTIM [Concomitant]
     Active Substance: FILGRASTIM
     Dates: start: 20220112, end: 20220112
  11. FILGRASTIM [Concomitant]
     Active Substance: FILGRASTIM
     Dates: start: 20220127, end: 20220127
  12. FILGRASTIM [Concomitant]
     Active Substance: FILGRASTIM
     Dates: start: 20220203, end: 20220203
  13. FILGRASTIM [Concomitant]
     Active Substance: FILGRASTIM
     Dates: start: 20220207, end: 20220207
  14. FILGRASTIM [Concomitant]
     Active Substance: FILGRASTIM
     Dates: start: 20220330, end: 20220330
  15. EISEN(II) ION [Concomitant]
     Dates: start: 20220128
  16. EISEN(II) ION [Concomitant]
     Dates: start: 20220421
  17. PREDNITOP SALBE [Concomitant]
     Dates: start: 20220223
  18. FERROUS GLUCONATE [Concomitant]
     Active Substance: FERROUS GLUCONATE
     Dates: start: 20220310

REACTIONS (1)
  - Anaemia [Recovered/Resolved]

NARRATIVE: CASE EVENT DATE: 20220512
